FAERS Safety Report 6325012-2 (Version None)
Quarter: 2009Q3

REPORT INFORMATION
  Report Type: 
  Country: None (occurrence: None)
  Receive Date: 20090824
  Receipt Date: 20090629
  Transmission Date: 20100115
  Serious: No
  Sender: FDA-Public Use
  Company Number: US-ABBOTT-09P-163-0579981-00

PATIENT
  Sex: Male
  Weight: 95.34 kg

DRUGS (10)
  1. NIASPAN [Suspect]
     Indication: BLOOD CHOLESTEROL INCREASED
     Route: 048
     Dates: start: 20060101, end: 20060101
  2. NIASPAN [Suspect]
     Route: 048
     Dates: start: 20070101, end: 20070101
  3. NIASPAN [Suspect]
     Dosage: CUT 500MG TABLET IN HALF
     Route: 048
     Dates: start: 20090529, end: 20090609
  4. NIASPAN [Suspect]
     Route: 048
     Dates: start: 20090610, end: 20090613
  5. COZAAR [Concomitant]
     Indication: HYPERTENSION
     Route: 048
  6. PLAVIX [Concomitant]
     Indication: ANTICOAGULANT THERAPY
     Route: 048
  7. ZETIA [Concomitant]
     Indication: BLOOD CHOLESTEROL INCREASED
     Route: 048
  8. ASPIRIN [Concomitant]
     Indication: CARDIOVASCULAR EVENT PROPHYLAXIS
     Route: 048
  9. MULTI-VITAMIN [Concomitant]
     Indication: MEDICAL DIET
     Route: 048
  10. FISH OIL [Concomitant]
     Indication: MEDICAL DIET
     Route: 048

REACTIONS (4)
  - INCORRECT DOSE ADMINISTERED [None]
  - PRURITUS GENERALISED [None]
  - SKIN BURNING SENSATION [None]
  - WRONG TECHNIQUE IN DRUG USAGE PROCESS [None]
